FAERS Safety Report 5916748-3 (Version None)
Quarter: 2008Q4

REPORT INFORMATION
  Report Type: 
  Country: None (occurrence: None)
  Receive Date: 20081013
  Receipt Date: 20080918
  Transmission Date: 20090506
  Serious: Yes (Other)
  Sender: FDA-Public Use
  Company Number: GB-BAYER-200827283GPV

PATIENT

DRUGS (1)
  1. TRASYLOL [Suspect]
     Indication: PNEUMONECTOMY
     Route: 042

REACTIONS (1)
  - RENAL IMPAIRMENT [None]
